FAERS Safety Report 21946285 (Version 1)
Quarter: 2023Q1

REPORT INFORMATION
  Report Type: Spontaneous
  Country: US (occurrence: US)
  Receive Date: 20230202
  Receipt Date: 20230202
  Transmission Date: 20230418
  Serious: No
  Sender: FDA-Public Use
  Company Number: US-INCYTE CORPORATION-2022IN004514

PATIENT

DRUGS (3)
  1. OPZELURA [Suspect]
     Active Substance: RUXOLITINIB PHOSPHATE
     Route: 065
  2. EUCRISA [Concomitant]
     Active Substance: CRISABOROLE
     Indication: Product used for unknown indication
     Route: 065
  3. HYDROCORTISONE [Concomitant]
     Active Substance: HYDROCORTISONE
     Indication: Product used for unknown indication
     Route: 061

REACTIONS (3)
  - Condition aggravated [Unknown]
  - Dry skin [Unknown]
  - Skin exfoliation [Unknown]
